APPROVED DRUG PRODUCT: PREDNISONE
Active Ingredient: PREDNISONE
Strength: 10MG
Dosage Form/Route: TABLET;ORAL
Application: A083677 | Product #003 | TE Code: AB
Applicant: MYLAN PHARMACEUTICALS INC
Approved: Dec 4, 1985 | RLD: No | RS: No | Type: RX